FAERS Safety Report 19499956 (Version 1)
Quarter: 2021Q3

REPORT INFORMATION
  Report Type: Spontaneous
  Country: US (occurrence: US)
  Receive Date: 20210707
  Receipt Date: 20210707
  Transmission Date: 20211014
  Serious: No
  Sender: FDA-Public Use
  Company Number: US-TEVA-2021-US-1927980

PATIENT
  Age: 62 Year
  Sex: Female
  Weight: 83.91 kg

DRUGS (1)
  1. ACYCLOVIR. [Suspect]
     Active Substance: ACYCLOVIR
     Indication: HERPES ZOSTER REACTIVATION
     Route: 065

REACTIONS (2)
  - Intentional overdose [Unknown]
  - Therapy non-responder [Unknown]
